FAERS Safety Report 4923324-8 (Version None)
Quarter: 2006Q1

REPORT INFORMATION
  Report Type: 
  Country: None (occurrence: None)
  Receive Date: 20060227
  Receipt Date: 20060216
  Transmission Date: 20060701
  Serious: Yes (Other)
  Sender: FDA-Public Use
  Company Number: GB-JNJFOC-20060204315

PATIENT
  Age: 57 Year
  Sex: Male

DRUGS (6)
  1. REMICADE [Suspect]
     Indication: ANKYLOSING SPONDYLITIS
     Route: 042
  2. DICLOFENAC [Concomitant]
     Indication: PAIN
     Route: 048
  3. CO-PROXAMOL [Concomitant]
     Route: 048
  4. CO-PROXAMOL [Concomitant]
     Indication: PAIN
     Route: 048
  5. RABEPRAZOLE SODIUM [Concomitant]
     Indication: GASTROOESOPHAGEAL REFLUX DISEASE
     Route: 048
  6. TEMAZEPAM [Concomitant]
     Indication: INSOMNIA
     Route: 048

REACTIONS (2)
  - CUTANEOUS LUPUS ERYTHEMATOSUS [None]
  - NEUTROPHIL COUNT DECREASED [None]
